FAERS Safety Report 8607120 (Version 4)
Quarter: 2013Q2

REPORT INFORMATION
  Report Type: Spontaneous
  Country: JP (occurrence: JP)
  Receive Date: 20120611
  Receipt Date: 20130521
  Transmission Date: 20140414
  Serious: Yes (Hospitalization)
  Sender: FDA-Public Use
  Company Number: JP-BRISTOL-MYERS SQUIBB COMPANY-16663502

PATIENT
  Age: 71 Year
  Sex: Male

DRUGS (8)
  1. ERBITUX SOLN FOR INF 5MG/ML [Suspect]
     Indication: COLON CANCER
     Dosage: 20MAY-20MAY10,700MG?28MAY-26NOV10,400MG?14JAN-18FEB11,300MG,1IN2WK?03MAR-03MAR11,400MG
     Route: 041
     Dates: start: 20100520, end: 20110303
  2. IRINOTECAN [Concomitant]
     Indication: COLON CANCER
     Dosage: 20MAY-20MAY10,120MG,1IN1D?03MAR-03MAR11,140MG,1IN1WK
     Route: 041
     Dates: start: 20100520, end: 20110303
  3. 5-FLUOROURACIL [Concomitant]
     Indication: COLON CANCER
     Dosage: INTRAHEPATIC
     Route: 042
     Dates: start: 20100618, end: 20101126
  4. POLARAMINE [Concomitant]
     Indication: PREMEDICATION
     Route: 041
     Dates: start: 20100520, end: 20110303
  5. DEXART [Concomitant]
     Indication: PREMEDICATION
     Route: 041
     Dates: start: 20100520, end: 20110303
  6. GRANISETRON [Concomitant]
     Indication: ANTIEMETIC SUPPORTIVE CARE
     Route: 041
     Dates: start: 20100520, end: 20110303
  7. SINSERON [Concomitant]
     Indication: ANTIEMETIC SUPPORTIVE CARE
     Dosage: TABS
     Route: 048
     Dates: start: 20100520, end: 20110303
  8. SODIUM BICARBONATE [Concomitant]
     Dosage: TABS
     Route: 048
     Dates: start: 20100520, end: 20110303

REACTIONS (3)
  - Groin abscess [Recovered/Resolved]
  - Pelvic abscess [Recovered/Resolved]
  - Dermatitis acneiform [Not Recovered/Not Resolved]
